FAERS Safety Report 17420633 (Version 4)
Quarter: 2020Q2

REPORT INFORMATION
  Report Type: Report from Study
  Country: CA (occurrence: CA)
  Receive Date: 20200214
  Receipt Date: 20200406
  Transmission Date: 20200713
  Serious: Yes (Other)
  Sender: FDA-Public Use
  Company Number: NVSC2020CA039181

PATIENT
  Sex: Female

DRUGS (4)
  1. PURELL [Concomitant]
     Active Substance: ALCOHOL
     Indication: PRODUCT USED FOR UNKNOWN INDICATION
     Route: 065
  2. TAFINLAR [Suspect]
     Active Substance: DABRAFENIB MESYLATE
     Indication: MALIGNANT MELANOMA
     Dosage: 150 MG
     Route: 048
     Dates: start: 20191121
  3. MEKINIST [Suspect]
     Active Substance: TRAMETINIB DIMETHYL SULFOXIDE
     Indication: MALIGNANT MELANOMA
     Dosage: 2 MG, UNKNOWN FREQUENCY
     Route: 048
     Dates: start: 20191121
  4. TAFINLAR [Suspect]
     Active Substance: DABRAFENIB MESYLATE
     Dosage: 300 MG
     Route: 048

REACTIONS (18)
  - Onychoclasis [Unknown]
  - Dizziness [Unknown]
  - Headache [Recovered/Resolved]
  - Hyperhidrosis [Unknown]
  - Peripheral swelling [Unknown]
  - Asthenia [Unknown]
  - Myelodysplastic syndrome [Unknown]
  - Rash [Recovered/Resolved]
  - Diarrhoea [Unknown]
  - Erythema [Unknown]
  - Epistaxis [Unknown]
  - Anxiety [Unknown]
  - Product dose omission [Unknown]
  - Nausea [Unknown]
  - Malaise [Unknown]
  - Menorrhagia [Unknown]
  - Decreased appetite [Unknown]
  - Fatigue [Unknown]
